FAERS Safety Report 4630970-8 (Version None)
Quarter: 2005Q2

REPORT INFORMATION
  Report Type: 
  Country: None (occurrence: None)
  Receive Date: 20050406
  Receipt Date: 20050406
  Transmission Date: 20051028
  Serious: No
  Sender: FDA-Public Use
  Company Number: None

PATIENT
  Sex: Female
  Weight: 92.8 kg

DRUGS (9)
  1. GEMZAR [Suspect]
     Dates: start: 20050311
  2. BEVACIZUMAB [Suspect]
  3. ROTONIX [Concomitant]
  4. LISINOPRIL AND HYDROCHLOROTHIAZIDE [Concomitant]
  5. LOVASTATIN [Concomitant]
  6. GLIPIZIDE [Concomitant]
  7. MORPHINE SL [Concomitant]
  8. ENDOCIN [Concomitant]
  9. ROCRIT [Concomitant]

REACTIONS (3)
  - CEREBROVASCULAR ACCIDENT [None]
  - FACIAL PALSY [None]
  - HEMIPARESIS [None]
